FAERS Safety Report 5851973-1 (Version None)
Quarter: 2008Q3

REPORT INFORMATION
  Report Type: 
  Country: None (occurrence: None)
  Receive Date: 20080819
  Receipt Date: 20080808
  Transmission Date: 20090109
  Serious: Yes (Hospitalization)
  Sender: FDA-Public Use
  Company Number: 2008AL005103

PATIENT
  Age: 65 Year
  Sex: Male

DRUGS (5)
  1. DIGOXIN [Suspect]
     Indication: CARDIAC FAILURE CONGESTIVE
     Dates: start: 19980101, end: 20080101
  2. ATACAND [Concomitant]
  3. COREG [Concomitant]
  4. LEVOTHYROXINE SODIUM [Concomitant]
  5. ASPIRIN [Concomitant]

REACTIONS (3)
  - CARDIAC PACEMAKER INSERTION [None]
  - CARDIOVERSION [None]
  - IMPLANTABLE DEFIBRILLATOR INSERTION [None]
